FAERS Safety Report 13185002 (Version 1)
Quarter: 2017Q1

REPORT INFORMATION
  Report Type: Report from Study
  Country: AT (occurrence: AT)
  Receive Date: 20170203
  Receipt Date: 20170203
  Transmission Date: 20170428
  Serious: Yes (Death, Hospitalization, Other)
  Sender: FDA-Public Use
  Company Number: AT-TEVA-735005ISR

PATIENT
  Age: 60 Year
  Sex: Female

DRUGS (3)
  1. CLOMIPRAMINE [Interacting]
     Active Substance: CLOMIPRAMINE
     Route: 065
  2. TRIMIPRAMINE [Interacting]
     Active Substance: TRIMIPRAMINE
     Route: 065
  3. OLANZAPINE. [Suspect]
     Active Substance: OLANZAPINE
     Route: 065

REACTIONS (5)
  - Myocardial ischaemia [Fatal]
  - Cardiomyopathy [Unknown]
  - Drug interaction [Unknown]
  - Coma [Unknown]
  - Atrioventricular block complete [Fatal]
